FAERS Safety Report 5282895-5 (Version None)
Quarter: 2007Q2

REPORT INFORMATION
  Report Type: 
  Country: None (occurrence: None)
  Receive Date: 20070402
  Receipt Date: 20070319
  Transmission Date: 20071010
  Serious: Yes (Other)
  Sender: FDA-Public Use
  Company Number: PHBS2007IT04743

PATIENT
  Age: 81 Year
  Sex: Female

DRUGS (5)
  1. METOPROLOL SUCCINATE [Suspect]
     Dosage: 100 MG/DAY
     Route: 048
     Dates: start: 20041118, end: 20070215
  2. LOPRESSOR [Suspect]
     Dosage: 100 MG/DAY
     Route: 048
     Dates: start: 20041118, end: 20070215
  3. INDOBUFEN [Concomitant]
  4. DOXAZOSIN MESYLATE [Concomitant]
  5. COTAREG [Concomitant]

REACTIONS (2)
  - ARRHYTHMIA [None]
  - DYSPNOEA [None]
